FAERS Safety Report 20409550 (Version 1)
Quarter: 2022Q1

REPORT INFORMATION
  Report Type: Spontaneous
  Country: NO (occurrence: NO)
  Receive Date: 20220201
  Receipt Date: 20220201
  Transmission Date: 20220423
  Serious: Yes (Other)
  Sender: FDA-Public Use
  Company Number: None

PATIENT
  Sex: Male
  Weight: 68 kg

DRUGS (6)
  1. REQUIP [Suspect]
     Active Substance: ROPINIROLE HYDROCHLORIDE
     Indication: Parkinson^s disease
     Dosage: 2 DF, QD (8 MG, 2 TABLETS A DAY (16 MG TOTAL))
     Route: 048
     Dates: start: 20171212, end: 20210628
  2. VITAMIN D3 [Concomitant]
     Active Substance: CHOLECALCIFEROL
     Indication: Product used for unknown indication
     Dosage: UNK
     Route: 065
  3. ELDEPRYL [Concomitant]
     Active Substance: SELEGILINE HYDROCHLORIDE
     Indication: Parkinson^s disease
     Dosage: 1 DF, QD
     Route: 065
     Dates: start: 20171212
  4. VITAMIN C [Concomitant]
     Active Substance: ASCORBIC ACID
     Indication: Product used for unknown indication
     Dosage: UNK
     Route: 065
  5. MAGNESIUM [Concomitant]
     Active Substance: MAGNESIUM
     Indication: Product used for unknown indication
     Dosage: UNK
     Route: 065
  6. BENSERAZIDE HYDROCHLORIDE\LEVODOPA [Concomitant]
     Active Substance: BENSERAZIDE HYDROCHLORIDE\LEVODOPA
     Indication: Parkinson^s disease
     Dosage: 8 DF, QD (8 TABLETS A DAY)
     Route: 065
     Dates: start: 20180925

REACTIONS (9)
  - Hallucination [Recovering/Resolving]
  - Irritability [Recovered/Resolved]
  - Aggression [Recovered/Resolved]
  - Indifference [Recovered/Resolved]
  - Back pain [Recovered/Resolved]
  - Dyskinesia [Recovered/Resolved]
  - Restlessness [Recovered/Resolved]
  - Suspiciousness [Recovered/Resolved]
  - Psychomotor hyperactivity [Recovered/Resolved]

NARRATIVE: CASE EVENT DATE: 20171214
